FAERS Safety Report 8387326-4 (Version None)
Quarter: 2012Q2

REPORT INFORMATION
  Report Type: 
  Country: None (occurrence: None)
  Receive Date: 20120525
  Receipt Date: 20120515
  Transmission Date: 20120825
  Serious: No
  Sender: FDA-Public Use
  Company Number: US-ASTRAZENECA-2012SE31140

PATIENT
  Age: 49 Year
  Sex: Male

DRUGS (1)
  1. CAPRELSA [Suspect]
     Indication: THYROID CANCER
     Route: 048

REACTIONS (3)
  - PARAESTHESIA [None]
  - FATIGUE [None]
  - ABDOMINAL PAIN [None]
